FAERS Safety Report 9199092 (Version 1)
Quarter: 2013Q1

REPORT INFORMATION
  Report Type: Spontaneous
  Country: US (occurrence: US)
  Receive Date: 20130329
  Receipt Date: 20130329
  Transmission Date: 20140127
  Serious: No
  Sender: FDA-Public Use
  Company Number: US-PFIZER INC-2013100303

PATIENT
  Age: 44 Year
  Sex: Female
  Weight: 61.68 kg

DRUGS (5)
  1. LYRICA [Suspect]
     Indication: BACK PAIN
     Dosage: 50 MG, 2X/DAY
     Route: 048
     Dates: start: 201302
  2. XANAX [Concomitant]
     Indication: ANXIETY
     Dosage: UNK
  3. CELEXA [Concomitant]
     Indication: DEPRESSION
     Dosage: UNK, 1X/DAY
  4. NAPROXEN [Concomitant]
     Dosage: UNK, AS NEEDED
  5. IBUPROFEN [Concomitant]
     Dosage: UNK, AS NEEDED

REACTIONS (1)
  - Therapeutic response unexpected [Unknown]
